FAERS Safety Report 4291338-X (Version None)
Quarter: 2004Q1

REPORT INFORMATION
  Report Type: 
  Country: None (occurrence: None)
  Receive Date: 20040206
  Receipt Date: 20040206
  Transmission Date: 20041129
  Serious: No
  Sender: FDA-Public Use
  Company Number: None

PATIENT
  Age: 47 Year
  Sex: Female
  Weight: 106.3685 kg

DRUGS (15)
  1. NEURONTIN [Suspect]
     Indication: PAIN
     Dosage: 100 MG BID PO
     Route: 048
     Dates: start: 20040127, end: 20040128
  2. LACTULOSE [Concomitant]
  3. DOCUSATE SODIUM [Concomitant]
  4. SENNA [Concomitant]
  5. RANITIDINE [Concomitant]
  6. LEVOTHYROID [Concomitant]
  7. CELEXA [Concomitant]
  8. KCL TAB [Concomitant]
  9. LASIX [Concomitant]
  10. ZYRTEC [Concomitant]
  11. MULTIVIT [Concomitant]
  12. NORVASC [Concomitant]
  13. FERROUS SULFATE TAB [Concomitant]
  14. SULFATCIM DS [Concomitant]
  15. OXYCONTIN [Concomitant]

REACTIONS (3)
  - OEDEMA PERIPHERAL [None]
  - PRURITUS [None]
  - SWELLING FACE [None]
